FAERS Safety Report 9102935 (Version 3)
Quarter: 2013Q2

REPORT INFORMATION
  Report Type: Spontaneous
  Country: SE (occurrence: SE)
  Receive Date: 20130219
  Receipt Date: 20130509
  Transmission Date: 20140414
  Serious: Yes (Hospitalization, Other)
  Sender: FDA-Public Use
  Company Number: SE-PFIZER INC-2013060733

PATIENT
  Age: 31 Year
  Sex: Female
  Weight: 70 kg

DRUGS (8)
  1. LYRICA [Suspect]
     Indication: CERVICAL RADICULOPATHY
     Dosage: 150 MG, 2X/DAY
     Route: 048
     Dates: start: 20111121, end: 20111210
  2. LYRICA [Suspect]
     Indication: PAIN
  3. LYRICA [Suspect]
     Indication: INTERVERTEBRAL DISC PROTRUSION
  4. LYRICA [Suspect]
     Indication: NEURALGIA
  5. OXYCONTIN [Concomitant]
     Indication: PAIN
     Dosage: 10 MG, 2X/DAY
     Dates: start: 20111106, end: 20120606
  6. OXYCONTIN [Concomitant]
     Indication: CERVICAL RADICULOPATHY
  7. PANODIL [Concomitant]
     Indication: CERVICAL RADICULOPATHY
     Dosage: 1000 MG, 4X/DAY
     Dates: start: 20111106, end: 20120606
  8. PANODIL [Concomitant]
     Indication: PAIN

REACTIONS (7)
  - Psychotic disorder [Recovered/Resolved]
  - Anxiety [Recovered/Resolved]
  - Hallucination [Recovered/Resolved]
  - Delusion [Recovered/Resolved]
  - Euphoric mood [Recovering/Resolving]
  - Formication [Unknown]
  - Restlessness [Unknown]
